FAERS Safety Report 15594689 (Version 2)
Quarter: 2018Q4

REPORT INFORMATION
  Report Type: Report from Study
  Country: US (occurrence: US)
  Receive Date: 20181107
  Receipt Date: 20181204
  Transmission Date: 20190205
  Serious: Yes (Hospitalization)
  Sender: FDA-Public Use
  Company Number: US-BAUSCH-BL-2018-025705

PATIENT
  Sex: Male
  Weight: 114.86 kg

DRUGS (4)
  1. SILIQ [Suspect]
     Active Substance: BRODALUMAB
     Indication: PSORIASIS
     Dosage: 210 MG /1.5 ML, AT WEEK 0,1, 2 THEN Q2 WEEKS, PRE-FILLED SYRINGE
     Route: 058
     Dates: start: 20180831, end: 2018
  2. METHOTREXATE. [Concomitant]
     Active Substance: METHOTREXATE
     Indication: PRODUCT USED FOR UNKNOWN INDICATION
  3. SILIQ [Suspect]
     Active Substance: BRODALUMAB
     Dosage: EARLY OCTOBER
     Route: 058
     Dates: start: 201810, end: 2018
  4. MOBIC [Concomitant]
     Active Substance: MELOXICAM
     Indication: PRODUCT USED FOR UNKNOWN INDICATION
     Route: 048

REACTIONS (19)
  - Hypersensitivity [Unknown]
  - Erythema [Not Recovered/Not Resolved]
  - Generalised erythema [Recovering/Resolving]
  - Diarrhoea [Not Recovered/Not Resolved]
  - Migraine [Unknown]
  - Cutaneous symptom [Not Recovered/Not Resolved]
  - Adverse reaction [Not Recovered/Not Resolved]
  - Vomiting [Unknown]
  - Rash [Recovered/Resolved]
  - Skin exfoliation [Unknown]
  - Chills [Recovered/Resolved]
  - Dysgeusia [Not Recovered/Not Resolved]
  - Drug effect decreased [Recovered/Resolved]
  - Pyrexia [Recovered/Resolved]
  - Psoriasis [Unknown]
  - Decreased appetite [Not Recovered/Not Resolved]
  - Dehydration [Recovered/Resolved]
  - Pruritus [Not Recovered/Not Resolved]
  - Insomnia [Not Recovered/Not Resolved]

NARRATIVE: CASE EVENT DATE: 2018
